FAERS Safety Report 20940421 (Version 1)
Quarter: 2022Q2

REPORT INFORMATION
  Report Type: Report from Study
  Country: DE (occurrence: DE)
  Receive Date: 20220609
  Receipt Date: 20220609
  Transmission Date: 20220721
  Serious: Yes (Hospitalization)
  Sender: FDA-Public Use
  Company Number: DE-BAXTER-2022BAX011565

PATIENT
  Sex: Male

DRUGS (4)
  1. OLIMEL E [Suspect]
     Active Substance: AMINO ACIDS\DEXTROSE\ELECTROLYTES NOS\SOYBEAN OIL
     Indication: Parenteral nutrition
     Dosage: 2000 ML, QD, INFUSION RATE: 100 MILLILITRE PER HOUR, CENTRAL VENOUS ROUTE
     Route: 042
     Dates: start: 20220525, end: 20220528
  2. CERNEVIT [Suspect]
     Active Substance: VITAMINS
     Indication: Parenteral nutrition
     Dosage: 750 MG, QD, INFUSION RATE: 100 MILLILITRE PER HOUR, CENTRAL VENOUS ROUTE
     Route: 042
     Dates: start: 20220525, end: 20220528
  3. ELECTROLYTES NOS\MINERALS [Suspect]
     Active Substance: ELECTROLYTES NOS\MINERALS
     Indication: Parenteral nutrition
     Dosage: 10 ML, QD, INFUSION RATE: 100 MILLILITRE PER HOUR, CENTRAL VENOUS ROUTE
     Route: 042
     Dates: start: 20220525, end: 20220528
  4. UNSPECIFIED INGREDIENT [Suspect]
     Active Substance: UNSPECIFIED INGREDIENT
     Route: 065

REACTIONS (2)
  - Pain [Unknown]
  - Cardiovascular disorder [Unknown]

NARRATIVE: CASE EVENT DATE: 20220528
